FAERS Safety Report 5231117-X (Version None)
Quarter: 2007Q1

REPORT INFORMATION
  Report Type: 
  Country: None (occurrence: None)
  Receive Date: 20070206
  Receipt Date: 20070125
  Transmission Date: 20070707
  Serious: Yes (Hospitalization, Other)
  Sender: FDA-Public Use
  Company Number: CS-NOVOPROD-260433

PATIENT
  Age: 13 Year
  Sex: Female
  Weight: 65 kg

DRUGS (4)
  1. LEVEMIR [Suspect]
     Indication: DIABETES MELLITUS INSULIN-DEPENDENT
     Dosage: 38 IU, QD
     Route: 058
     Dates: start: 20061128
  2. LEVEMIR [Suspect]
     Dosage: 28 IU, QD
  3. NOVORAPID FLEXPEN [Suspect]
     Indication: DIABETES MELLITUS INSULIN-DEPENDENT
     Dosage: 48 IU, QD
     Route: 058
     Dates: start: 20050610
  4. NOVORAPID FLEXPEN [Suspect]
     Dosage: 38 IU, QD

REACTIONS (3)
  - HYPOGLYCAEMIC SEIZURE [None]
  - HYPOGLYCAEMIC UNCONSCIOUSNESS [None]
  - VOMITING [None]
